FAERS Safety Report 6008871-2 (Version None)
Quarter: 2008Q4

REPORT INFORMATION
  Report Type: 
  Country: None (occurrence: None)
  Receive Date: 20081217
  Receipt Date: 20081217
  Transmission Date: 20090506
  Serious: Yes (Hospitalization)
  Sender: FDA-Public Use
  Company Number: None

PATIENT
  Sex: Female
  Weight: 87 kg

DRUGS (5)
  1. CYCLOPHOSPHAMIDE [Suspect]
     Dosage: 1430 MG
     Dates: end: 20081202
  2. DOXORUBICIN HYDROCHLORIDE [Suspect]
     Dosage: 96 MG
     Dates: end: 20081202
  3. PREDNISONE [Suspect]
     Dosage: 1000 MG
     Dates: end: 20081206
  4. RITUXIMAB (MOAB C2B8 ANTI CD20, CHIMERIC) [Suspect]
     Dosage: 716 MG
     Dates: end: 20081202
  5. VINCRISTINE SULFATE [Suspect]
     Dosage: 2 MG
     Dates: end: 20081202

REACTIONS (5)
  - CHILLS [None]
  - FATIGUE [None]
  - HYPERHIDROSIS [None]
  - NAUSEA [None]
  - NEUTROPENIA [None]
